FAERS Safety Report 21512640 (Version 1)
Quarter: 2022Q4

REPORT INFORMATION
  Report Type: Spontaneous
  Country: US (occurrence: US)
  Receive Date: 20221027
  Receipt Date: 20221027
  Transmission Date: 20230113
  Serious: Yes (Hospitalization, Other)
  Sender: FDA-Public Use
  Company Number: US-SUN PHARMACEUTICAL INDUSTRIES LTD-2022R1-360657

PATIENT
  Age: 25 Year
  Sex: Female

DRUGS (1)
  1. PAROXETINE [Suspect]
     Active Substance: PAROXETINE
     Indication: Product used for unknown indication
     Dosage: ESTIMATED 2100 MG
     Route: 065

REACTIONS (4)
  - Overdose [Unknown]
  - Suicide attempt [Unknown]
  - Syncope [Unknown]
  - Electrocardiogram QT prolonged [Recovering/Resolving]
